FAERS Safety Report 8921969 (Version 1)
Quarter: 2012Q4

REPORT INFORMATION
  Report Type: Spontaneous
  Country: US (occurrence: None)
  Receive Date: 20121119
  Receipt Date: 20121119
  Transmission Date: 20130627
  Serious: Yes (Other)
  Sender: FDA-Public Use
  Company Number: None

PATIENT
  Age: 57 Year
  Sex: Female
  Weight: 102.51 kg

DRUGS (1)
  1. QSYMIA [Suspect]
     Indication: WEIGHT CONTROL
     Dates: start: 20121106, end: 20121112

REACTIONS (8)
  - Cognitive disorder [None]
  - Mood altered [None]
  - Disturbance in attention [None]
  - Depression [None]
  - Dysgeusia [None]
  - Headache [None]
  - Irritability [None]
  - Vomiting [None]
